FAERS Safety Report 15882677 (Version 1)
Quarter: 2019Q1

REPORT INFORMATION
  Report Type: Spontaneous
  Country: US (occurrence: US)
  Receive Date: 20190129
  Receipt Date: 20190129
  Transmission Date: 20190417
  Serious: Yes (Other)
  Sender: FDA-Public Use
  Company Number: US-LUPIN PHARMACEUTICALS INC.-2019-00323

PATIENT
  Age: 52 Year
  Sex: Female

DRUGS (2)
  1. POLYETHYLENE GLYCOL [Suspect]
     Active Substance: POLYETHYLENE GLYCOLS
     Indication: PREMEDICATION
     Dosage: UNK
     Route: 065
  2. PHYTONADIONE. [Interacting]
     Active Substance: PHYTONADIONE
     Indication: INTERNATIONAL NORMALISED RATIO INCREASED
     Dosage: 10 MG, UNK
     Route: 042

REACTIONS (5)
  - Hypotension [Recovered/Resolved]
  - Anaphylactoid reaction [Unknown]
  - Drug interaction [Unknown]
  - Erythema [Recovered/Resolved]
  - International normalised ratio increased [Unknown]
